FAERS Safety Report 8041187-1 (Version None)
Quarter: 2012Q1

REPORT INFORMATION
  Report Type: 
  Country: None (occurrence: None)
  Receive Date: 20120112
  Receipt Date: 20120104
  Transmission Date: 20120608
  Serious: Yes (Other)
  Sender: FDA-Public Use
  Company Number: US-BAYER-2011-053124

PATIENT
  Age: 25 Year
  Sex: Female
  Weight: 122.45 kg

DRUGS (3)
  1. YAZ [Suspect]
     Indication: CONTRACEPTION
     Dosage: UNK
     Route: 048
     Dates: start: 20081101, end: 20090701
  2. ORTHO TRI-CYCLEN LO [Concomitant]
     Dosage: UNK
     Dates: start: 20050101
  3. FAMOTIDINE [Concomitant]
     Dosage: 20 MG, UNK
     Route: 048
     Dates: start: 20090225

REACTIONS (5)
  - ANXIETY [None]
  - INJURY [None]
  - BILIARY DYSKINESIA [None]
  - PAIN [None]
  - EMOTIONAL DISTRESS [None]
